FAERS Safety Report 5860595-8 (Version None)
Quarter: 2008Q3

REPORT INFORMATION
  Report Type: 
  Country: None (occurrence: None)
  Receive Date: 20080826
  Receipt Date: 20080818
  Transmission Date: 20090109
  Serious: Yes (Hospitalization)
  Sender: FDA-Public Use
  Company Number: 2008SP014365

PATIENT
  Age: 77 Year
  Sex: Male
  Weight: 93 kg

DRUGS (7)
  1. TEMODAR (TEMEZOLOMIDE) [Suspect]
     Dosage: 100 MG/M2;QD; PO; 420 ;PO
     Route: 048
     Dates: start: 20080627, end: 20080710
  2. TEMODAR (TEMEZOLOMIDE) [Suspect]
     Dosage: 100 MG/M2;QD; PO; 420 ;PO
     Route: 048
     Dates: start: 20080711
  3. COREG [Concomitant]
  4. OMEPRAZOLE [Concomitant]
  5. AVODART [Concomitant]
  6. VYTORIN [Concomitant]
  7. ALLOPURINOL [Concomitant]

REACTIONS (12)
  - ACUTE MYELOID LEUKAEMIA [None]
  - CARDIOMEGALY [None]
  - DYSPNOEA [None]
  - FEBRILE NEUTROPENIA [None]
  - GENERAL PHYSICAL HEALTH DETERIORATION [None]
  - HYPERHIDROSIS [None]
  - INFECTION [None]
  - MALIGNANT NEOPLASM PROGRESSION [None]
  - OEDEMA PERIPHERAL [None]
  - PITTING OEDEMA [None]
  - PYREXIA [None]
  - WHITE BLOOD CELL COUNT INCREASED [None]
